FAERS Safety Report 6147614-9 (Version None)
Quarter: 2009Q2

REPORT INFORMATION
  Report Type: 
  Country: None (occurrence: None)
  Receive Date: 20090408
  Receipt Date: 20090403
  Transmission Date: 20091009
  Serious: Yes (Hospitalization)
  Sender: FDA-Public Use
  Company Number: DE-JNJFOC-20090400008

PATIENT
  Sex: Male

DRUGS (3)
  1. TAVANIC [Suspect]
     Indication: BILIARY TRACT INFECTION
     Route: 048
  2. TAVANIC [Suspect]
     Route: 042
  3. CEFUROXIME [Suspect]
     Indication: DRUG USE FOR UNKNOWN INDICATION
     Route: 042

REACTIONS (5)
  - DYSGEUSIA [None]
  - INFECTION [None]
  - PERITONEAL INFECTION [None]
  - PYREXIA [None]
  - SHOCK [None]
